FAERS Safety Report 14392426 (Version 2)
Quarter: 2018Q1

REPORT INFORMATION
  Report Type: Report from Study
  Country: AR (occurrence: AR)
  Receive Date: 20180116
  Receipt Date: 20180119
  Transmission Date: 20180509
  Serious: Yes (Death, Hospitalization)
  Sender: FDA-Public Use
  Company Number: PHHY2018AR005999

PATIENT
  Sex: Female

DRUGS (1)
  1. ENTRESTO [Suspect]
     Active Substance: SACUBITRIL\VALSARTAN
     Indication: CARDIAC FAILURE
     Dosage: UNK
     Route: 065
     Dates: start: 20160722

REACTIONS (4)
  - Pneumonia [Fatal]
  - Hypertension [Unknown]
  - Gait disturbance [Unknown]
  - Prolapse [Unknown]
